FAERS Safety Report 10150633 (Version 1)
Quarter: 2014Q2

REPORT INFORMATION
  Report Type: Spontaneous
  Country: US (occurrence: US)
  Receive Date: 20140502
  Receipt Date: 20140502
  Transmission Date: 20141212
  Serious: Yes (Disabling, Other)
  Sender: FDA-Public Use
  Company Number: US-RB-066791-14

PATIENT
  Sex: Female

DRUGS (4)
  1. SUBOXONE FILM [Suspect]
     Indication: DRUG DEPENDENCE
     Dosage: SUBOXONE FILM; PRESCRIBED 16 MG DAILY BUT INTEMITTENTLY TAKING 24 MG DAILY.
     Route: 060
     Dates: end: 201404
  2. SUBOXONE FILM [Suspect]
     Dosage: SUBOXONE FILM; BUYING THE FILM AND CUTTING; TAKING VARIOUS UNSPECIFIED DOSES
     Route: 060
     Dates: start: 201404, end: 20140422
  3. GABAPENTIN [Concomitant]
     Indication: DIABETIC NEUROPATHY
     Dosage: DOSING DETAILS UKNOWN
     Route: 048
  4. GLIPIZIDE [Concomitant]
     Indication: DIABETES MELLITUS
     Dosage: DOSING DETAILS UNKNOWN
     Route: 048

REACTIONS (8)
  - Extra dose administered [Recovered/Resolved]
  - Diabetic neuropathy [Unknown]
  - Condition aggravated [Unknown]
  - Skin lesion [Recovered/Resolved]
  - Osteomyelitis [Recovered/Resolved]
  - Substance abuse [Recovered/Resolved]
  - Wrong technique in drug usage process [Recovered/Resolved]
  - Drug withdrawal syndrome [Not Recovered/Not Resolved]
